FAERS Safety Report 7268735-3 (Version None)
Quarter: 2011Q1

REPORT INFORMATION
  Report Type: 
  Country: None (occurrence: None)
  Receive Date: 20110201
  Receipt Date: 20110125
  Transmission Date: 20110831
  Serious: Yes (Hospitalization)
  Sender: FDA-Public Use
  Company Number: CA-PFIZER INC-2010162950

PATIENT
  Age: 70 Year
  Sex: Female
  Weight: 77.098 kg

DRUGS (9)
  1. HYDROCHLOROTHIAZIDE [Concomitant]
     Indication: HYPERTENSION
     Dosage: 12.5 MG, 1X/DAY
  2. CRESTOR [Concomitant]
     Indication: BLOOD CHOLESTEROL INCREASED
     Dosage: 10 MG, 1X/DAY
  3. DEMEROL [Concomitant]
     Indication: PAIN
     Dosage: 50-100MG EVERY 4 HRS AS NEEDED
     Dates: start: 20101013
  4. EFFEXOR XR [Suspect]
     Indication: HOT FLUSH
     Dosage: 75 MG, 1X/DAY
     Dates: start: 20000101
  5. EFFEXOR XR [Suspect]
     Indication: FEELING COLD
  6. NEXIUM [Concomitant]
     Indication: GASTROOESOPHAGEAL REFLUX DISEASE
     Dosage: 40 MG, 1X/DAY
  7. ATENOLOL [Concomitant]
     Indication: HEART RATE IRREGULAR
     Dosage: 25 MG, 1X/DAY
  8. VITAMIN D [Concomitant]
     Dosage: 50000 IU, WEEKLY
  9. TYLENOL-500 [Concomitant]
     Indication: PAIN
     Dosage: 500 MG, EVERY 4 HRS AS NEEDED
     Dates: start: 20101013

REACTIONS (9)
  - NIGHTMARE [None]
  - SLEEP TALKING [None]
  - HEADACHE [None]
  - KNEE ARTHROPLASTY [None]
  - PANIC REACTION [None]
  - FEELING ABNORMAL [None]
  - FEELING OF BODY TEMPERATURE CHANGE [None]
  - FEELING HOT [None]
  - DRUG WITHDRAWAL SYNDROME [None]
